FAERS Safety Report 24991796 (Version 1)
Quarter: 2025Q1

REPORT INFORMATION
  Report Type: Spontaneous
  Country: US (occurrence: None)
  Receive Date: 20250220
  Receipt Date: 20250220
  Transmission Date: 20250409
  Serious: Yes (Other)
  Sender: FDA-CTU
  Company Number: None

PATIENT
  Age: 41 Year
  Sex: Male
  Weight: 86.4 kg

DRUGS (1)
  1. XYZAL [Suspect]
     Active Substance: LEVOCETIRIZINE DIHYDROCHLORIDE
     Dates: start: 20250207, end: 20250214

REACTIONS (2)
  - Benign prostatic hyperplasia [None]
  - Adverse drug reaction [None]

NARRATIVE: CASE EVENT DATE: 20250213
